FAERS Safety Report 6906993-2 (Version None)
Quarter: 2010Q3

REPORT INFORMATION
  Report Type: 
  Country: None (occurrence: None)
  Receive Date: 20100804
  Receipt Date: 20080422
  Transmission Date: 20110219
  Serious: No
  Sender: FDA-Public Use
  Company Number: US-PFIZER INC-2008038113

PATIENT
  Sex: Male

DRUGS (2)
  1. SELZENTRY [Suspect]
  2. DRUG, UNSPECIFIED [Concomitant]

REACTIONS (2)
  - RASH [None]
  - RASH VESICULAR [None]
